FAERS Safety Report 24868202 (Version 1)
Quarter: 2025Q1

REPORT INFORMATION
  Report Type: Spontaneous
  Country: US (occurrence: None)
  Receive Date: 20250119
  Receipt Date: 20250119
  Transmission Date: 20250409
  Serious: Yes (Hospitalization, Other)
  Sender: FDA-CTU
  Company Number: None

PATIENT
  Age: 56 Year
  Sex: Female
  Weight: 74.25 kg

DRUGS (6)
  1. KEYTRUDA [Suspect]
     Active Substance: PEMBROLIZUMAB
     Indication: Malignant melanoma
     Dosage: OTHER QUANTITY : 1 INFUSION;?FREQUENCY : EVERY THREE WEEKS;?
     Route: 042
     Dates: start: 20240815, end: 20241002
  2. KEYTRUDA [Suspect]
     Active Substance: PEMBROLIZUMAB
     Indication: Neoplasm recurrence
  3. SERTRALINE HYDROCHLORIDE [Concomitant]
     Active Substance: SERTRALINE HYDROCHLORIDE
  4. Levothyroxen [Concomitant]
  5. HYDROCORTISONE [Concomitant]
     Active Substance: HYDROCORTISONE
  6. FLUDROCORTISONE [Concomitant]
     Active Substance: FLUDROCORTISONE

REACTIONS (6)
  - Blood creatinine increased [None]
  - Blood corticotrophin abnormal [None]
  - Nausea [None]
  - Blood potassium increased [None]
  - Kidney fibrosis [None]
  - Renal impairment [None]

NARRATIVE: CASE EVENT DATE: 20240905
